FAERS Safety Report 14560476 (Version 2)
Quarter: 2018Q2

REPORT INFORMATION
  Report Type: Spontaneous
  Country: CH (occurrence: CH)
  Receive Date: 20180222
  Receipt Date: 20180418
  Transmission Date: 20180711
  Serious: Yes (Death)
  Sender: FDA-Public Use
  Company Number: CH-B.I. PHARMACEUTICALS,INC./RIDGEFIELD-2018-BI-009540

PATIENT
  Age: 69 Year
  Sex: Male

DRUGS (3)
  1. OFEV [Suspect]
     Active Substance: NINTEDANIB
     Indication: IDIOPATHIC PULMONARY FIBROSIS
     Route: 065
     Dates: start: 20170124, end: 20170315
  2. OFEV [Suspect]
     Active Substance: NINTEDANIB
     Route: 065
     Dates: start: 20170324, end: 20170816
  3. OFEV [Suspect]
     Active Substance: NINTEDANIB
     Route: 065
     Dates: start: 201709, end: 20170926

REACTIONS (3)
  - Sudden death [Fatal]
  - Diarrhoea [Recovered/Resolved]
  - Malaise [Unknown]

NARRATIVE: CASE EVENT DATE: 20170315
